FAERS Safety Report 6491985-0 (Version None)
Quarter: 2009Q4

REPORT INFORMATION
  Report Type: 
  Country: None (occurrence: None)
  Receive Date: 20091208
  Receipt Date: 20091125
  Transmission Date: 20100525
  Serious: Yes (Life-Threatening)
  Sender: FDA-Public Use
  Company Number: 8055295

PATIENT
  Sex: Female
  Weight: 20 kg

DRUGS (3)
  1. KEPPRA [Suspect]
     Indication: EPILEPSY
     Dosage: (250 MG BID ORAL)
     Route: 048
     Dates: start: 20090305, end: 20090310
  2. CLOBAZAM [Concomitant]
  3. TOPIRAMATE [Concomitant]

REACTIONS (2)
  - CLONIC CONVULSION [None]
  - STATUS EPILEPTICUS [None]
